FAERS Safety Report 20813442 (Version 7)
Quarter: 2022Q3

REPORT INFORMATION
  Report Type: Report from Study
  Country: US (occurrence: None)
  Receive Date: 20220511
  Receipt Date: 20220825
  Transmission Date: 20221027
  Serious: Yes (Life-Threatening, Hospitalization)
  Sender: FDA-Public Use
  Company Number: US-ROCHE-3038802

PATIENT
  Age: 47 Year
  Sex: Female
  Weight: 76.3 kg

DRUGS (53)
  1. PLACEBO [Suspect]
     Active Substance: UNSPECIFIED INGREDIENT
     Indication: Relapsing-remitting multiple sclerosis
     Dosage: WEEK 1?SUBSEQUENT DOSES RECEIVED ON 05/FEB/2013 (WEEK 2), 09/JUL/2013 (WEEK 24), 18/DEC/2013 (WEEK 4
     Route: 042
     Dates: start: 20130122, end: 20130122
  2. OCRELIZUMAB [Suspect]
     Active Substance: OCRELIZUMAB
     Indication: Relapsing-remitting multiple sclerosis
     Dosage: WEEK 0?ON DAYS 1 AND 15 FOR THE FIRST DOSE AND AS A SINGLE INFUSION FOR ALL SUBSEQUENT INFUSIONS EVE
     Route: 042
     Dates: start: 20141208, end: 20141208
  3. OCRELIZUMAB [Suspect]
     Active Substance: OCRELIZUMAB
     Dosage: OLE WEEK 24?SUBSEQUENT DOSES 10/NOV/15 (OLE WEEK 48), 22/APR/2016 (OLE  WEEK 72), 11/OCT/2016 (OLE W
     Route: 042
     Dates: start: 20150526, end: 20150526
  4. INTERFERON BETA-1A [Suspect]
     Active Substance: INTERFERON BETA-1A
     Indication: Relapsing-remitting multiple sclerosis
     Route: 042
     Dates: start: 20130122, end: 20130122
  5. INTERFERON BETA-1A [Suspect]
     Active Substance: INTERFERON BETA-1A
     Route: 042
     Dates: start: 20130220, end: 20130318
  6. INTERFERON BETA-1A [Suspect]
     Active Substance: INTERFERON BETA-1A
     Route: 042
     Dates: start: 20130320, end: 20140415
  7. ACETAMINOPHEN [Concomitant]
     Active Substance: ACETAMINOPHEN
     Indication: COVID-19
     Dosage: BASELINE (WEEK 1)?SUBSEQUENT DOSES: 05/FEB/2013, 09/JUL/2013, 10/JUN/2014, 08/DEC/2014, 22/DEC/2014,
     Dates: start: 20130122
  8. ACETAMINOPHEN [Concomitant]
     Active Substance: ACETAMINOPHEN
     Dates: start: 20220220, end: 20220220
  9. DIPHENHYDRAMINE [Concomitant]
     Active Substance: DIPHENHYDRAMINE
     Dosage: BASELINE (WEEK 1)?SUBSEQUENT DOSES: 05/FEB/2013, 09/JUL/2013, 10/JUN/2014, 08/DEC/2014, 22/DEC/2014,
     Dates: start: 20130122
  10. METHYLPREDNISOLONE [Concomitant]
     Active Substance: METHYLPREDNISOLONE
     Dosage: BASELINE (WEEK 1)?SUBSEQUENT DOSES: 05/FEB/2013, 09/JUL/2013, 10/JUN/2014, 08/DEC/2014, 22/DEC/2014,
     Dates: start: 20130122
  11. BENADRYL [Concomitant]
     Active Substance: DIPHENHYDRAMINE HYDROCHLORIDE
     Dates: start: 20170322
  12. CEFDINIR [Concomitant]
     Active Substance: CEFDINIR
  13. CLINDAMYCIN [Concomitant]
     Active Substance: CLINDAMYCIN
  14. AMOXICILLIN [Concomitant]
     Active Substance: AMOXICILLIN
  15. LORAZEPAM [Concomitant]
     Active Substance: LORAZEPAM
  16. ZOLPIDEM [Concomitant]
     Active Substance: ZOLPIDEM TARTRATE
  17. TRAZODONE [Concomitant]
     Active Substance: TRAZODONE HYDROCHLORIDE
     Indication: Anxiety
  18. ADVAIR DISKUS [Concomitant]
     Active Substance: FLUTICASONE PROPIONATE\SALMETEROL XINAFOATE
     Indication: Asthma
  19. ALBUTEROL [Concomitant]
     Active Substance: ALBUTEROL
     Indication: Asthma
  20. PERCOCET [Concomitant]
     Active Substance: ACETAMINOPHEN\OXYCODONE HYDROCHLORIDE
     Indication: Back pain
  21. ZANAFLEX [Concomitant]
     Active Substance: TIZANIDINE HYDROCHLORIDE
  22. SPRINTEC [Concomitant]
     Active Substance: ETHINYL ESTRADIOL\NORGESTIMATE
  23. MUCINEX [Concomitant]
     Active Substance: GUAIFENESIN
     Indication: Cough
  24. MODERNA COVID-19 VACCINE [Concomitant]
     Active Substance: ELASOMERAN
     Indication: COVID-19 prophylaxis
     Dates: start: 20210316
  25. AMITRIPTYLINE [Concomitant]
     Active Substance: AMITRIPTYLINE
     Indication: Depression
  26. PRISTIQ EXTENDED-RELEASE [Concomitant]
     Active Substance: DESVENLAFAXINE SUCCINATE
     Indication: Depression
  27. FLUTICASONE PROPIONATE [Concomitant]
     Active Substance: FLUTICASONE PROPIONATE
     Indication: Hypersensitivity
  28. LASIX [Concomitant]
     Active Substance: FUROSEMIDE
     Indication: Hypertension
     Dates: start: 20201215
  29. FUROSEMIDE [Concomitant]
     Active Substance: FUROSEMIDE
  30. SOLU-MEDROL [Concomitant]
     Active Substance: METHYLPREDNISOLONE SODIUM SUCCINATE
     Dates: start: 20210523
  31. MEDROL [Concomitant]
     Active Substance: METHYLPREDNISOLONE
  32. LYRICA [Concomitant]
     Active Substance: PREGABALIN
     Indication: Multiple sclerosis
     Dates: start: 201203
  33. VANCOMYCIN HYDROCHLORIDE [Concomitant]
     Active Substance: VANCOMYCIN HYDROCHLORIDE
     Dates: start: 20220220
  34. AMPICILLIN [Concomitant]
     Active Substance: AMPICILLIN
     Dates: start: 20220221, end: 20220227
  35. HYDROCORTISONE SODIUM SUCCINATE [Concomitant]
     Active Substance: HYDROCORTISONE SODIUM SUCCINATE
     Indication: Inflammation
     Dates: start: 20220220, end: 20220220
  36. CEFTRIAXONE SODIUM [Concomitant]
     Active Substance: CEFTRIAXONE SODIUM
     Indication: Infection
     Dates: start: 20220331, end: 20220404
  37. CYCLOBENZAPRINE [Concomitant]
     Active Substance: CYCLOBENZAPRINE
     Indication: Muscle spasms
     Dates: start: 202105
  38. AZITHROMYCIN [Concomitant]
     Active Substance: AZITHROMYCIN
     Indication: Phlebitis
     Dates: start: 20211223
  39. AZITHROMYCIN [Concomitant]
     Active Substance: AZITHROMYCIN
     Indication: Cough
  40. AZITHROMYCIN [Concomitant]
     Active Substance: AZITHROMYCIN
     Indication: Wheezing
  41. AZO-CRANBERRY [Concomitant]
     Dates: start: 20211105
  42. VENTOLIN [Concomitant]
     Active Substance: ALBUTEROL SULFATE
     Indication: Sinusitis
     Dates: start: 20191206
  43. VITAMIN B12 [Concomitant]
     Active Substance: CYANOCOBALAMIN
     Dates: start: 201211
  44. MEGA D3 [Concomitant]
     Dates: start: 201211
  45. METOPROLOL TARTRATE [Concomitant]
     Active Substance: METOPROLOL TARTRATE
     Dates: start: 20220220
  46. TRIMETHOPRIM [Concomitant]
     Active Substance: TRIMETHOPRIM
     Indication: Urinary tract infection
     Dates: start: 20211021
  47. SULFAMETHOXAZOLE\TRIMETHOPRIM [Concomitant]
     Active Substance: SULFAMETHOXAZOLE\TRIMETHOPRIM
     Indication: Urinary tract infection
     Dates: start: 20210413
  48. INFLUENZA VIRUS VACCINE [Concomitant]
     Active Substance: INFLUENZA VIRUS VACCINE
     Dates: start: 20161003
  49. BACTRIM DS [Concomitant]
     Active Substance: SULFAMETHOXAZOLE\TRIMETHOPRIM
     Indication: Urinary tract infection
     Dates: start: 20170707
  50. METOPROLOL [Concomitant]
     Active Substance: METOPROLOL
     Indication: Tachycardia
     Dates: start: 20220525, end: 20220525
  51. ENOXAPARIN SODIUM [Concomitant]
     Active Substance: ENOXAPARIN SODIUM
     Indication: Thrombosis
     Dates: start: 20220221
  52. VANCOMYCIN [Concomitant]
     Active Substance: VANCOMYCIN
     Indication: White blood cell count
     Dates: start: 20220526, end: 20220526
  53. ZOSYN [Concomitant]
     Active Substance: PIPERACILLIN SODIUM\TAZOBACTAM SODIUM
     Indication: White blood cell count
     Dates: start: 20220526, end: 20220526

REACTIONS (3)
  - Mental status changes [Recovered/Resolved]
  - Acute kidney injury [Recovered/Resolved]
  - Sepsis [Recovered/Resolved]

NARRATIVE: CASE EVENT DATE: 20220220
